FAERS Safety Report 8170930-6 (Version None)
Quarter: 2012Q1

REPORT INFORMATION
  Report Type: 
  Country: None (occurrence: None)
  Receive Date: 20120228
  Receipt Date: 20120223
  Transmission Date: 20120608
  Serious: Yes (Hospitalization)
  Sender: FDA-Public Use
  Company Number: JP-B.I. PHARMACEUTICALS,INC./RIDGEFIELD-2012-BP-03500NB

PATIENT
  Age: 91 Year
  Sex: Female

DRUGS (5)
  1. FUROSEMIDE [Concomitant]
     Indication: CARDIAC FAILURE
     Dosage: 40 MG
     Route: 048
  2. CANDESARTAN CILEXETIL [Concomitant]
     Dosage: 12 MG
     Route: 048
  3. PRADAXA [Suspect]
     Indication: ATRIAL FIBRILLATION
     Dosage: 150 MG
     Route: 048
     Dates: start: 20110428, end: 20120217
  4. EPLERENONE [Concomitant]
     Dosage: 25 MG
     Route: 048
  5. CARVEDILOL [Concomitant]
     Dosage: 5 MG
     Route: 048

REACTIONS (1)
  - CEREBRAL INFARCTION [None]
